FAERS Safety Report 22029837 (Version 1)
Quarter: 2023Q1

REPORT INFORMATION
  Report Type: Spontaneous
  Country: US (occurrence: US)
  Receive Date: 20230223
  Receipt Date: 20230223
  Transmission Date: 20230418
  Serious: No
  Sender: FDA-Public Use
  Company Number: US-GUERBET / LLC-US-20220102

PATIENT
  Age: 70 Year
  Sex: Female

DRUGS (1)
  1. DOTAREM [Suspect]
     Active Substance: GADOTERATE MEGLUMINE
     Indication: Magnetic resonance imaging spinal
     Route: 065
     Dates: start: 20221022, end: 20221022

REACTIONS (4)
  - Sneezing [Unknown]
  - Pharyngeal paraesthesia [Unknown]
  - Ear pruritus [Unknown]
  - Product use in unapproved indication [Unknown]
